FAERS Safety Report 5698225-0 (Version None)
Quarter: 2008Q2

REPORT INFORMATION
  Report Type: 
  Country: None (occurrence: None)
  Receive Date: 20080408
  Receipt Date: 20080401
  Transmission Date: 20081010
  Serious: Yes (Other)
  Sender: FDA-Public Use
  Company Number: FR-WYE-G01335608

PATIENT
  Sex: Male
  Weight: 80 kg

DRUGS (17)
  1. EFFEXOR [Suspect]
     Dosage: UNKNOWN
     Route: 048
     Dates: start: 20080201
  2. RIFADIN [Suspect]
     Indication: MENINGITIS TUBERCULOUS
     Route: 048
     Dates: start: 20080120, end: 20080225
  3. RIFADIN [Suspect]
     Route: 048
     Dates: start: 20080226
  4. PIRILENE [Suspect]
     Indication: MENINGITIS TUBERCULOUS
     Route: 048
     Dates: start: 20080131, end: 20080201
  5. PIRILENE [Suspect]
     Route: 048
     Dates: start: 20080201
  6. MYAMBUTOL [Suspect]
     Indication: MENINGITIS TUBERCULOUS
     Route: 048
     Dates: start: 20080111, end: 20080119
  7. MYAMBUTOL [Suspect]
     Route: 048
     Dates: start: 20080120, end: 20080128
  8. MYAMBUTOL [Suspect]
     Route: 048
     Dates: start: 20080129, end: 20080225
  9. MYAMBUTOL [Suspect]
     Route: 048
     Dates: start: 20080226
  10. HEPARIN-FRACTION, SODIUM SALT [Suspect]
     Dosage: UNKNOWN
     Dates: start: 20080205
  11. INSULIN [Suspect]
     Dosage: UNKNOWN
     Route: 058
  12. TIENAM [Concomitant]
     Dosage: UNKNOWN
     Dates: start: 20080209
  13. CORTANCYL [Concomitant]
     Dosage: UNKNOWN
     Dates: start: 20080201, end: 20080225
  14. SOLU-MEDROL [Concomitant]
     Dosage: UNKNOWN
     Dates: start: 20080226
  15. RIMIFON [Suspect]
     Indication: MENINGITIS TUBERCULOUS
     Route: 048
     Dates: start: 20080129, end: 20080304
  16. RIMIFON [Suspect]
     Route: 048
     Dates: start: 20080305
  17. AMLOR [Suspect]
     Dosage: UNKNOWN
     Route: 048

REACTIONS (4)
  - CHOLESTASIS [None]
  - CYTOLYTIC HEPATITIS [None]
  - TRANSAMINASES INCREASED [None]
  - VOMITING [None]
